FAERS Safety Report 9878360 (Version 1)
Quarter: 2014Q1

REPORT INFORMATION
  Report Type: Spontaneous
  Country: US (occurrence: US)
  Receive Date: 20140206
  Receipt Date: 20140206
  Transmission Date: 20141002
  Serious: No
  Sender: FDA-Public Use
  Company Number: US-ALLERGAN-1311180US

PATIENT
  Age: 38 Year
  Sex: Female

DRUGS (20)
  1. BOTOX [Suspect]
     Indication: MIGRAINE
     Dosage: 150 UNITS, SINGLE
     Route: 030
     Dates: start: 201306, end: 201306
  2. BOTOX [Suspect]
     Dosage: 150 UNITS, SINGLE
     Route: 030
     Dates: start: 201303, end: 201303
  3. BOTOX [Suspect]
     Dosage: 100 UNITS, SINGLE
     Route: 030
  4. ABILIFY [Concomitant]
     Indication: BIPOLAR DISORDER
     Dosage: 30 MG, QD
     Route: 048
     Dates: start: 2006, end: 201306
  5. PRENATAL VITAMINS                  /02014401/ [Concomitant]
     Indication: SUPPLEMENTATION THERAPY
     Dosage: UNK
  6. VITAMIN D3 [Concomitant]
     Indication: SUPPLEMENTATION THERAPY
     Dosage: UNK
  7. PRILOSEC                           /00661201/ [Concomitant]
     Indication: OESOPHAGEAL HAEMORRHAGE
     Dosage: UNK
  8. ZETIA [Concomitant]
     Indication: BLOOD CHOLESTEROL INCREASED
     Dosage: 10 MG, QD
     Route: 048
  9. KEPPRA [Concomitant]
     Indication: MIGRAINE PROPHYLAXIS
     Dosage: 1500 MG, BID
     Route: 048
  10. CELEBREX [Concomitant]
     Indication: BACK PAIN
     Dosage: 200 MG, BID
     Route: 048
  11. VERAPAMIL SR [Concomitant]
     Indication: MIGRAINE PROPHYLAXIS
     Dosage: 180 MG, QD
     Route: 048
  12. CYMBALTA [Concomitant]
     Indication: BACK PAIN
     Dosage: 60 MG, QD
     Route: 048
  13. PROBIOTICS NOS [Concomitant]
     Indication: PRODUCT USED FOR UNKNOWN INDICATION
     Dosage: UNK
  14. CLARINEX                           /01202601/ [Concomitant]
     Indication: HYPERSENSITIVITY
     Dosage: 10 MG, QD
     Route: 048
  15. ZANAFLEX [Concomitant]
     Indication: MUSCLE SPASMS
     Dosage: 4 MG, TID PRN
     Route: 048
  16. DEPLIN [Concomitant]
     Indication: COELIAC DISEASE
     Dosage: 15 MG, QD
     Route: 048
  17. DEPLIN [Concomitant]
     Indication: GENE MUTATION
  18. PROMETRIUM                         /00110701/ [Concomitant]
     Indication: POLYCYSTIC OVARIES
     Dosage: 200 MG, QD FOR 10 DAYS EVERY 3 MONTHS
  19. PERCOCET                           /00446701/ [Concomitant]
     Indication: BACK PAIN
     Dosage: 15 MG, Q8HR PRN
     Route: 048
  20. FENTANYL                           /00174602/ [Concomitant]
     Indication: BACK PAIN
     Dosage: 50 ?G, EVERY 72 HR
     Route: 061

REACTIONS (19)
  - Blood creatine phosphokinase increased [Unknown]
  - Hypotension [Unknown]
  - Fall [Unknown]
  - Balance disorder [Unknown]
  - Skin burning sensation [Unknown]
  - Hyperaesthesia [Unknown]
  - Sensory disturbance [Unknown]
  - Pain [Unknown]
  - Asthenia [Unknown]
  - Fatigue [Unknown]
  - Migraine [Recovered/Resolved]
  - Headache [Unknown]
  - Pruritus generalised [Unknown]
  - Dyspnoea [Unknown]
  - Musculoskeletal stiffness [Unknown]
  - Neck pain [Unknown]
  - Hyperhidrosis [Unknown]
  - Muscle spasms [Unknown]
  - Muscle spasms [Unknown]
